FAERS Safety Report 10144160 (Version 2)
Quarter: 2014Q2

REPORT INFORMATION
  Report Type: Report from Study
  Country: US (occurrence: US)
  Receive Date: 20140430
  Receipt Date: 20140519
  Transmission Date: 20141212
  Serious: Yes (Hospitalization)
  Sender: FDA-Public Use
  Company Number: US-ACTELION-A-US2014-97960

PATIENT
  Age: 37 Year
  Sex: Female

DRUGS (3)
  1. TRACLEER [Suspect]
     Indication: PULMONARY ARTERIAL HYPERTENSION
     Dosage: 250 MG, BID
     Route: 048
     Dates: start: 2010
  2. TYVASO [Concomitant]
  3. COUMADIN [Concomitant]

REACTIONS (4)
  - Seizure anoxic [Recovering/Resolving]
  - Pneumonia [Recovering/Resolving]
  - Pulmonary arterial hypertension [Recovering/Resolving]
  - Loss of consciousness [Recovering/Resolving]
